FAERS Safety Report 11431550 (Version 1)
Quarter: 2015Q3

REPORT INFORMATION
  Report Type: Spontaneous
  Country: CH (occurrence: CH)
  Receive Date: 20150828
  Receipt Date: 20150828
  Transmission Date: 20151125
  Serious: Yes (Hospitalization, Other)
  Sender: FDA-Public Use
  Company Number: CH-PFIZER INC-2015283881

PATIENT
  Age: 88 Year
  Sex: Male

DRUGS (5)
  1. CORDARONE [Suspect]
     Active Substance: AMIODARONE HYDROCHLORIDE
     Indication: ATRIAL FIBRILLATION
     Dosage: 200 MG, DAILY
     Route: 048
     Dates: start: 20090716
  2. COVERSUM [Concomitant]
     Active Substance: PERINDOPRIL
     Indication: HYPERTENSION
     Dosage: UNK
     Dates: start: 20150629
  3. ESOMEP [Concomitant]
     Active Substance: ESOMEPRAZOLE
     Indication: CHRONIC GASTRITIS
     Dosage: UNK
  4. ZALDIAR [Suspect]
     Active Substance: ACETAMINOPHEN\TRAMADOL HYDROCHLORIDE
     Indication: PAIN
     Dosage: 1 DF, 3X/DAY
     Route: 048
     Dates: start: 20150629, end: 20150708
  5. EUTHYROX [Concomitant]
     Active Substance: LEVOTHYROXINE SODIUM
     Indication: HYPOTHYROIDISM
     Dosage: UNK

REACTIONS (8)
  - Cholestasis [Not Recovered/Not Resolved]
  - Meningioma [Unknown]
  - Squamous cell carcinoma of skin [Unknown]
  - Peripheral sensory neuropathy [Unknown]
  - Gamma-glutamyltransferase increased [Not Recovered/Not Resolved]
  - Fall [Recovered/Resolved]
  - Back pain [Unknown]
  - Bladder cancer [Unknown]

NARRATIVE: CASE EVENT DATE: 201011
